FAERS Safety Report 5027587-2 (Version None)
Quarter: 2006Q2

REPORT INFORMATION
  Report Type: 
  Country: None (occurrence: None)
  Receive Date: 20060428
  Receipt Date: 20060104
  Transmission Date: 20061013
  Serious: No
  Sender: FDA-Public Use
  Company Number: COT_0351_2006

PATIENT
  Age: 68 Year
  Sex: Female
  Weight: 96.1626 kg

DRUGS (10)
  1. VENTAVIS [Suspect]
     Indication: PULMONARY HYPERTENSION
     Dosage: 5 MCG 4 TIMES A DAY IH
     Dates: start: 20051202, end: 20060101
  2. HYDROCHLOROTHIAZIDE [Concomitant]
  3. WARFARIN SODIUM [Concomitant]
  4. LASIX [Concomitant]
  5. ACCUPRIL [Concomitant]
  6. AMARYL [Concomitant]
  7. DECONAMINE - SLOW RELEASE [Concomitant]
  8. ZOLOFT [Concomitant]
  9. ACIPHEX [Concomitant]
  10. ACTOS [Concomitant]

REACTIONS (2)
  - DIARRHOEA [None]
  - HEART RATE INCREASED [None]
